FAERS Safety Report 6205134-7 (Version None)
Quarter: 2009Q2

REPORT INFORMATION
  Report Type: 
  Country: None (occurrence: None)
  Receive Date: 20090527
  Receipt Date: 20090225
  Transmission Date: 20091009
  Serious: No
  Sender: FDA-Public Use
  Company Number: US-ABBOTT-09P-163-0559686-00

PATIENT
  Sex: Male

DRUGS (13)
  1. SIMCOR [Suspect]
     Indication: BLOOD CHOLESTEROL INCREASED
     Dosage: 500/20MG
     Route: 048
  2. ALPHAGAN [Concomitant]
     Indication: DRUG USE FOR UNKNOWN INDICATION
     Dosage: PER EYE GTTS
  3. AVODART [Concomitant]
     Indication: DRUG USE FOR UNKNOWN INDICATION
  4. ENALAPRIL MALEATE [Concomitant]
     Indication: DRUG USE FOR UNKNOWN INDICATION
  5. FLOMAX [Concomitant]
     Indication: DRUG USE FOR UNKNOWN INDICATION
  6. GLIPIZIDE [Concomitant]
     Indication: DRUG USE FOR UNKNOWN INDICATION
  7. METFORMIN HCL [Concomitant]
     Indication: DRUG USE FOR UNKNOWN INDICATION
  8. NASONEX [Concomitant]
     Indication: DRUG USE FOR UNKNOWN INDICATION
  9. ZEGRID [Concomitant]
     Indication: DRUG USE FOR UNKNOWN INDICATION
  10. XALATAN [Concomitant]
     Indication: DRUG USE FOR UNKNOWN INDICATION
  11. FISH OIL [Concomitant]
     Indication: DRUG USE FOR UNKNOWN INDICATION
  12. VIT C [Concomitant]
     Indication: DRUG USE FOR UNKNOWN INDICATION
  13. MVT [Concomitant]
     Indication: DRUG USE FOR UNKNOWN INDICATION

REACTIONS (1)
  - RASH [None]
